FAERS Safety Report 5145418-7 (Version None)
Quarter: 2006Q4

REPORT INFORMATION
  Report Type: 
  Country: None (occurrence: None)
  Receive Date: 20061101
  Receipt Date: 20061019
  Transmission Date: 20070319
  Serious: Yes (Death)
  Sender: FDA-Public Use
  Company Number: B0443877A

PATIENT
  Age: 13 Year
  Sex: Male

DRUGS (4)
  1. ALKERAN [Suspect]
     Indication: STEM CELL TRANSPLANT
     Dosage: 140 MG/M2 / CYCLIC /
  2. MYLERAN [Suspect]
     Indication: STEM CELL TRANSPLANT
     Dosage: CYCLIC / INTRAVENOUS
     Route: 042
  3. CYCLOPHOSPHAMIDE [Suspect]
     Indication: STEM CELL TRANSPLANT
     Dosage: 120 MG/KG / CYCLIC
  4. CLONAZEPAM [Concomitant]

REACTIONS (2)
  - GRAFT VERSUS HOST DISEASE [None]
  - SEPSIS [None]
